FAERS Safety Report 7235689-5 (Version None)
Quarter: 2011Q1

REPORT INFORMATION
  Report Type: 
  Country: None (occurrence: None)
  Receive Date: 20110110
  Receipt Date: 20091023
  Transmission Date: 20110831
  Serious: Yes (Other)
  Sender: FDA-Public Use
  Company Number: 2009SP032301

PATIENT
  Age: 28 Year
  Sex: Female

DRUGS (1)
  1. CERAZETTE (DESOGESTREL /00754001/) [Suspect]
     Indication: CONTRACEPTION

REACTIONS (5)
  - PREGNANCY ON ORAL CONTRACEPTIVE [None]
  - DRUG DOSE OMISSION [None]
  - ABORTION SPONTANEOUS [None]
  - TREATMENT NONCOMPLIANCE [None]
  - DRUG EXPOSURE DURING PREGNANCY [None]
